FAERS Safety Report 8891414 (Version 1)
Quarter: 2012Q4

REPORT INFORMATION
  Report Type: Spontaneous
  Country: US (occurrence: None)
  Receive Date: 20121105
  Receipt Date: 20121105
  Transmission Date: 20130627
  Serious: Yes (Hospitalization)
  Sender: FDA-Public Use
  Company Number: None

PATIENT
  Age: 89 Year
  Sex: Female
  Weight: 53.3 kg

DRUGS (2)
  1. WARFARIN [Suspect]
     Indication: ATRIAL FIBRILLATION
     Dates: start: 20120729, end: 20120911
  2. ASPIRIN [Suspect]
     Indication: CORONARY ARTERY DISEASE
     Route: 048
     Dates: start: 20120729, end: 20120911

REACTIONS (3)
  - Fall [None]
  - Subdural haemorrhage [None]
  - Haemorrhage intracranial [None]
